FAERS Safety Report 9615133 (Version 1)
Quarter: 2013Q4

REPORT INFORMATION
  Report Type: Spontaneous
  Country: US (occurrence: US)
  Receive Date: 20131011
  Receipt Date: 20131011
  Transmission Date: 20140711
  Serious: No
  Sender: FDA-Public Use
  Company Number: US-PURDUE-USA-2013-0097741

PATIENT
  Sex: Female

DRUGS (5)
  1. BUTRANS [Suspect]
     Indication: BACK PAIN
     Dosage: 5 MCG, UNK
     Route: 062
  2. BUTRANS [Interacting]
     Indication: ADDISON^S DISEASE
     Dosage: 10 MCG, UNK
     Route: 062
  3. BUTRANS [Interacting]
     Dosage: 5 MCG, UNK
     Route: 062
  4. MUSCLE RELAXANTS [Interacting]
     Indication: BACK PAIN
     Route: 048
  5. HYDROCORTISONE [Concomitant]
     Indication: INFLAMMATION
     Dosage: 20 MG IN AM, 10 MG IN AFTERNOON, 10 MG QHS DAILY
     Route: 048

REACTIONS (8)
  - Drug effect increased [Recovered/Resolved]
  - Drug interaction [Recovered/Resolved]
  - Drug ineffective [Recovered/Resolved]
  - Dizziness [Recovered/Resolved]
  - Constipation [Recovered/Resolved]
  - Nausea [Recovered/Resolved]
  - Dry mouth [Not Recovered/Not Resolved]
  - Feeling abnormal [Recovered/Resolved]
